FAERS Safety Report 7172424-3 (Version None)
Quarter: 2010Q4

REPORT INFORMATION
  Report Type: 
  Country: None (occurrence: None)
  Receive Date: 20101217
  Receipt Date: 20100209
  Transmission Date: 20110411
  Serious: No
  Sender: FDA-Public Use
  Company Number: US-AMGEN-KDL391753

PATIENT

DRUGS (7)
  1. ENBREL [Suspect]
     Indication: PRODUCT USED FOR UNKNOWN INDICATION
     Dosage: 25 MG, 2 TIMES/WK
     Route: 058
  2. TRAZODONE HCL [Concomitant]
     Dosage: 50 MG, UNK
     Route: 048
  3. HYDROXYCHLOROQUINE [Concomitant]
     Dosage: 200 MG, UNK
     Route: 048
  4. MORPHINE SULFATE [Concomitant]
     Dosage: 60 MG, UNK
     Route: 048
  5. FLUOXETINE HYDROCHLORIDE [Concomitant]
     Dosage: 20 MG, UNK
     Route: 048
  6. PREDNISONE [Concomitant]
     Dosage: 10 MG, UNK
  7. ACETAMINOPHEN AND OXYCODONE HCL [Concomitant]
     Dosage: 650 MG, UNK
     Route: 048

REACTIONS (4)
  - DEHYDRATION [None]
  - DIARRHOEA [None]
  - INFLUENZA [None]
  - VOMITING [None]
